FAERS Safety Report 8278091-X (Version None)
Quarter: 2012Q2

REPORT INFORMATION
  Report Type: 
  Country: None (occurrence: None)
  Receive Date: 20120412
  Receipt Date: 20111024
  Transmission Date: 20120825
  Serious: No
  Sender: FDA-Public Use
  Company Number: US-ASTRAZENECA-2011SE64223

PATIENT
  Age: 58 Year
  Sex: Female
  Weight: 113.4 kg

DRUGS (6)
  1. UNITHYRIOD [Concomitant]
     Indication: THYROID DISORDER
  2. NEXIUM [Suspect]
     Indication: GASTROOESOPHAGEAL REFLUX DISEASE
     Route: 048
  3. ASCORBIC ACID [Concomitant]
     Indication: VITAMIN C DEFICIENCY
  4. VITAMIN B-12 [Concomitant]
     Indication: VITAMIN B12 DEFICIENCY
  5. POTASSIUM [Concomitant]
  6. VITAMIN D [Concomitant]
     Indication: VITAMIN D DEFICIENCY

REACTIONS (3)
  - VITAMIN C DEFICIENCY [None]
  - VITAMIN D DEFICIENCY [None]
  - VITAMIN B12 DEFICIENCY [None]
